FAERS Safety Report 6409415-3 (Version None)
Quarter: 2009Q4

REPORT INFORMATION
  Report Type: 
  Country: None (occurrence: None)
  Receive Date: 20091019
  Receipt Date: 20091019
  Transmission Date: 20100525
  Serious: Yes (Congenital Anomaly)
  Sender: FDA-Public Use
  Company Number: None

PATIENT
  Sex: Male
  Weight: 3.1752 kg

DRUGS (1)
  1. ENALAPRIL MALEATE [Suspect]
     Indication: CARDIOMYOPATHY
     Dosage: 5 MG 2X/DAY PO
     Route: 048
     Dates: start: 20010101, end: 20040314

REACTIONS (9)
  - ARTERIAL DISORDER [None]
  - ATRIAL SEPTAL DEFECT [None]
  - CARDIOVASCULAR DISORDER [None]
  - COARCTATION OF THE AORTA [None]
  - MATERNAL DRUGS AFFECTING FOETUS [None]
  - PATENT DUCTUS ARTERIOSUS [None]
  - POST PROCEDURAL COMPLICATION [None]
  - SUBVALVULAR AORTIC STENOSIS [None]
  - UNEQUAL LIMB LENGTH [None]
